FAERS Safety Report 23875016 (Version 1)
Quarter: 2024Q2

REPORT INFORMATION
  Report Type: Spontaneous
  Country: US (occurrence: None)
  Receive Date: 20240518
  Receipt Date: 20240518
  Transmission Date: 20240716
  Serious: Yes (Other)
  Sender: FDA-Public Use
  Company Number: None

PATIENT
  Age: 67 Year
  Sex: Male
  Weight: 111.6 kg

DRUGS (8)
  1. ELIQUIS [Suspect]
     Active Substance: APIXABAN
     Indication: Thrombosis prophylaxis
     Dosage: 1` TABLET TWICE A DAY ORAL
     Route: 048
  2. FUROSEMIDE [Concomitant]
     Active Substance: FUROSEMIDE
  3. POTASSIUM [Concomitant]
     Active Substance: POTASSIUM
  4. ALLOPURINOL [Concomitant]
     Active Substance: ALLOPURINOL
  5. JANTOVEN [Concomitant]
     Active Substance: WARFARIN SODIUM
  6. PREDNISONE [Concomitant]
     Active Substance: PREDNISONE
  7. TAMSULOSIN HYDROCHLORIDE [Concomitant]
     Active Substance: TAMSULOSIN HYDROCHLORIDE
  8. Hemp based CBD/CBN gummies [Concomitant]

REACTIONS (5)
  - Inflammation [None]
  - Pain in extremity [None]
  - Arthralgia [None]
  - Oedema peripheral [None]
  - Oedema peripheral [None]

NARRATIVE: CASE EVENT DATE: 20240305
